FAERS Safety Report 25619475 (Version 1)
Quarter: 2025Q3

REPORT INFORMATION
  Report Type: Spontaneous
  Country: CN (occurrence: CN)
  Receive Date: 20250729
  Receipt Date: 20250729
  Transmission Date: 20251020
  Serious: Yes (Hospitalization)
  Sender: EISAI
  Company Number: CN-Eisai-EC-2025-193761

PATIENT
  Age: 56 Year
  Sex: Female
  Weight: 52.5 kg

DRUGS (3)
  1. LENVATINIB [Suspect]
     Active Substance: LENVATINIB
     Indication: Hepatic cancer
     Dates: start: 20250416
  2. ERIBULIN [Suspect]
     Active Substance: ERIBULIN
     Indication: Hepatic cancer
     Dates: start: 20250416
  3. PUCOTENLIMAB [Suspect]
     Active Substance: PUCOTENLIMAB
     Indication: Hepatic cancer
     Dates: start: 20250416, end: 20250630

REACTIONS (1)
  - Myelosuppression [Recovering/Resolving]

NARRATIVE: CASE EVENT DATE: 20250713
